FAERS Safety Report 25817367 (Version 1)
Quarter: 2025Q3

REPORT INFORMATION
  Report Type: Spontaneous
  Country: US (occurrence: US)
  Receive Date: 20250918
  Receipt Date: 20250918
  Transmission Date: 20251021
  Serious: Yes (Hospitalization)
  Sender: ROCHE
  Company Number: US-ROCHE-10000387586

PATIENT
  Age: 28 Year
  Sex: Female

DRUGS (3)
  1. PERJETA [Suspect]
     Active Substance: PERTUZUMAB
     Indication: HER2 positive breast cancer
     Route: 042
     Dates: start: 202405
  2. PHESGO [Suspect]
     Active Substance: HYALURONIDASE-ZZXF\PERTUZUMAB\TRASTUZUMAB
     Indication: HER2 positive breast cancer
     Route: 058
     Dates: start: 20240529, end: 202505
  3. HERCEPTIN [Suspect]
     Active Substance: TRASTUZUMAB
     Indication: HER2 positive breast cancer
     Route: 065
     Dates: start: 202405

REACTIONS (5)
  - Blister [Recovered/Resolved]
  - Skin burning sensation [Recovered/Resolved]
  - Burning sensation [Recovered/Resolved]
  - White blood cell count decreased [Recovered/Resolved]
  - Red blood cell count decreased [Recovered/Resolved]

NARRATIVE: CASE EVENT DATE: 20241201
